FAERS Safety Report 14297552 (Version 2)
Quarter: 2017Q4

REPORT INFORMATION
  Report Type: Report from Study
  Country: US (occurrence: US)
  Receive Date: 20171218
  Receipt Date: 20171221
  Transmission Date: 20180321
  Serious: Yes (Death, Hospitalization)
  Sender: FDA-Public Use
  Company Number: US-ASTRAZENECA-2017SF28655

PATIENT
  Age: 26870 Day
  Sex: Male
  Weight: 145 kg

DRUGS (10)
  1. LIPITOR [Concomitant]
     Active Substance: ATORVASTATIN CALCIUM
     Dosage: 80 MG
     Route: 048
     Dates: start: 20160829
  2. SYMBICORT [Concomitant]
     Active Substance: BUDESONIDE\FORMOTEROL FUMARATE DIHYDRATE
     Dosage: 80-4.5 MCG/ACTUATION INHALER B
     Dates: start: 20160829
  3. PLAVIX [Concomitant]
     Active Substance: CLOPIDOGREL BISULFATE
     Route: 048
     Dates: start: 20160829
  4. ASPIRIN. [Concomitant]
     Active Substance: ASPIRIN
     Dosage: 81 MG
     Route: 048
     Dates: start: 20160829
  5. CELEXA [Concomitant]
     Active Substance: CITALOPRAM HYDROBROMIDE
     Route: 048
     Dates: start: 20160829
  6. TEMODAR [Suspect]
     Active Substance: TEMOZOLOMIDE
     Indication: SMALL CELL LUNG CANCER
     Dosage: 75 MG/M2  DAYS 1-7 OF 21 DAY
     Route: 048
     Dates: start: 20171020
  7. COMBIVENT RESPIMAT [Concomitant]
     Active Substance: ALBUTEROL SULFATE\IPRATROPIUM BROMIDE
     Dosage: FOUR TIMES A DAY
     Dates: start: 20160829
  8. PRINIVIL, ZESTRIL [Concomitant]
     Dates: start: 20160829
  9. TOPPROL XL [Concomitant]
     Route: 048
     Dates: start: 20160829
  10. OLAPARIB. [Suspect]
     Active Substance: OLAPARIB
     Indication: SMALL CELL LUNG CANCER
     Dosage: 200 MG DAYS 1-7 OF 21 DAY
     Route: 048
     Dates: start: 20171020

REACTIONS (4)
  - Hypotension [Unknown]
  - Death [Fatal]
  - Respiratory distress [Unknown]
  - Sepsis [Unknown]

NARRATIVE: CASE EVENT DATE: 20171211
